FAERS Safety Report 5235083-2 (Version None)
Quarter: 2007Q1

REPORT INFORMATION
  Report Type: 
  Country: None (occurrence: None)
  Receive Date: 20070207
  Receipt Date: 20070123
  Transmission Date: 20070707
  Serious: Yes (Hospitalization)
  Sender: FDA-Public Use
  Company Number: 2006EU001615

PATIENT
  Age: 59 Year
  Sex: Female
  Weight: 49 kg

DRUGS (5)
  1. PROGRAF [Suspect]
     Indication: RENAL TRANSPLANT
     Dosage: 3.5 MG, UID/QD, ORAL
     Route: 048
     Dates: end: 20060325
  2. GANCICLOVIR SODIUM [Suspect]
     Indication: RENAL TRANSPLANT
     Dosage: 150 MG, VID, IV NOS
     Route: 042
     Dates: start: 20060310, end: 20060324
  3. NEORECORMON (EPOETIN BETA) [Suspect]
     Indication: ANAEMIA
     Dosage: SUBCUTANEOUS
     Route: 058
     Dates: end: 20060318
  4. SOLUPRED (PRDNISOLONE SODIUM SULFOBENZOATE) [Concomitant]
  5. CELLCEPT [Concomitant]

REACTIONS (25)
  - ANAEMIA [None]
  - ANXIETY [None]
  - BACTERAEMIA [None]
  - CONDITION AGGRAVATED [None]
  - CONSCIOUSNESS FLUCTUATING [None]
  - CYTOMEGALOVIRUS INFECTION [None]
  - DEHYDRATION [None]
  - DIARRHOEA [None]
  - DIPLOPIA [None]
  - ENCEPHALOPATHY [None]
  - HAEMOLYTIC ANAEMIA [None]
  - HYPERTENSION [None]
  - HYPOCALCAEMIA [None]
  - HYPOMAGNESAEMIA [None]
  - KIDNEY TRANSPLANT REJECTION [None]
  - MOTOR DYSFUNCTION [None]
  - MUSCULAR WEAKNESS [None]
  - OESOPHAGITIS [None]
  - POST PROCEDURAL COMPLICATION [None]
  - PYELONEPHRITIS [None]
  - RENAL FAILURE [None]
  - SENSORY DISTURBANCE [None]
  - SYNCOPE [None]
  - THROMBOCYTOPENIA [None]
  - WEIGHT DECREASED [None]
